FAERS Safety Report 8559621-7 (Version None)
Quarter: 2012Q3

REPORT INFORMATION
  Report Type: 
  Country: None (occurrence: None)
  Receive Date: 20120802
  Receipt Date: 20120730
  Transmission Date: 20120928
  Serious: Yes (Other)
  Sender: FDA-Public Use
  Company Number: BR-PFIZER INC-2012179778

PATIENT
  Age: 65 Year
  Sex: Female
  Weight: 54 kg

DRUGS (5)
  1. DECADRON PHOSPHATE [Concomitant]
     Dosage: HALT TABLET OF 2MG
  2. OMEPRAZOLE [Concomitant]
  3. SUTENT [Suspect]
     Indication: RENAL CELL CARCINOMA
     Dosage: 50 MG, 1X/DAY
     Route: 048
     Dates: start: 20120630, end: 20120728
  4. PHENYTOIN [Concomitant]
  5. DRAMIN /BRA/ [Concomitant]

REACTIONS (5)
  - SWELLING FACE [None]
  - ABDOMINAL PAIN [None]
  - FEEDING DISORDER [None]
  - VOMITING [None]
  - EYE SWELLING [None]
